FAERS Safety Report 14478605 (Version 2)
Quarter: 2018Q1

REPORT INFORMATION
  Report Type: Spontaneous
  Country: US (occurrence: US)
  Receive Date: 20180202
  Receipt Date: 20180207
  Transmission Date: 20180509
  Serious: Yes (Other)
  Sender: FDA-Public Use
  Company Number: US-ROCHE-2060705

PATIENT
  Sex: Male

DRUGS (3)
  1. AVASTIN [Suspect]
     Active Substance: BEVACIZUMAB
     Indication: VITREOUS HAEMORRHAGE
  2. AVASTIN [Suspect]
     Active Substance: BEVACIZUMAB
     Indication: DIABETIC RETINAL OEDEMA
  3. AVASTIN [Suspect]
     Active Substance: BEVACIZUMAB
     Indication: DIABETIC RETINOPATHY
     Route: 050

REACTIONS (18)
  - Endophthalmitis [Unknown]
  - Off label use [Unknown]
  - Eyelid margin crusting [Unknown]
  - Overdose [Unknown]
  - Eye swelling [Unknown]
  - Eye irritation [Unknown]
  - Dysgeusia [Unknown]
  - Eye pain [Unknown]
  - Ocular hyperaemia [Unknown]
  - Headache [Unknown]
  - Blindness [Unknown]
  - Eye injury [Unknown]
  - Nausea [Unknown]
  - Product contamination [Unknown]
  - Vomiting [Unknown]
  - Intentional product use issue [Not Recovered/Not Resolved]
  - Anxiety [Unknown]
  - Feeding disorder [Unknown]
